FAERS Safety Report 8237600-7 (Version None)
Quarter: 2012Q1

REPORT INFORMATION
  Report Type: 
  Country: None (occurrence: None)
  Receive Date: 20120323
  Receipt Date: 20120309
  Transmission Date: 20120608
  Serious: Yes (Other)
  Sender: FDA-Public Use
  Company Number: 2012AP000686

PATIENT
  Age: 26 Year
  Sex: Female

DRUGS (5)
  1. CITALOPRAM HYDROBROMIDE [Suspect]
     Indication: PRODUCT USED FOR UNKNOWN INDICATION
     Dosage: UNKNOWN
  2. VENLAFAXINE [Suspect]
     Indication: PRODUCT USED FOR UNKNOWN INDICATION
     Dosage: 37.5; 300 MG, QD
  3. FLUOXETINE [Suspect]
     Indication: PRODUCT USED FOR UNKNOWN INDICATION
     Dosage: UNKNIOWN
  4. PAROXETINE HCL [Suspect]
     Indication: STRESS
     Dosage: 20 MG, QD
  5. SERTRALINE HYDROCHLORIDE [Suspect]
     Indication: PRODUCT USED FOR UNKNOWN INDICATION
     Dosage: UNKNOWN

REACTIONS (16)
  - RESTLESSNESS [None]
  - PANIC ATTACK [None]
  - AGGRESSION [None]
  - SUICIDE ATTEMPT [None]
  - FATIGUE [None]
  - DELIRIUM [None]
  - IMPULSIVE BEHAVIOUR [None]
  - MARITAL PROBLEM [None]
  - INSOMNIA [None]
  - MULTIPLE DRUG OVERDOSE [None]
  - PHYSICAL ASSAULT [None]
  - ANGER [None]
  - AKATHISIA [None]
  - ADJUSTMENT DISORDER [None]
  - MENTAL IMPAIRMENT [None]
  - SELF ESTEEM DECREASED [None]
